FAERS Safety Report 14661216 (Version 2)
Quarter: 2018Q2

REPORT INFORMATION
  Report Type: Spontaneous
  Country: US (occurrence: US)
  Receive Date: 20180320
  Receipt Date: 20180409
  Transmission Date: 20180711
  Serious: Yes (Other)
  Sender: FDA-Public Use
  Company Number: US-SA-2018SA075313

PATIENT
  Age: 67 Year
  Sex: Female
  Weight: 99.79 kg

DRUGS (2)
  1. SOLOSTAR [Suspect]
     Active Substance: DEVICE
     Dates: start: 20110317
  2. LANTUS SOLOSTAR [Suspect]
     Active Substance: INSULIN GLARGINE
     Dosage: 35 U AT NIGHT + 15 U IN THE MORNING
     Route: 051
     Dates: start: 20110317

REACTIONS (2)
  - Amputation [Unknown]
  - Product use issue [Unknown]
